FAERS Safety Report 9946024 (Version 1)
Quarter: 2014Q1

REPORT INFORMATION
  Report Type: Spontaneous
  Country: US (occurrence: US)
  Receive Date: 20140303
  Receipt Date: 20140303
  Transmission Date: 20141002
  Serious: Yes (Death, Other)
  Sender: FDA-Public Use
  Company Number: PHHY2014US024770

PATIENT
  Age: 42 Year
  Sex: Female

DRUGS (2)
  1. CICLOSPORIN [Suspect]
     Indication: APLASTIC ANAEMIA
     Dates: end: 201012
  2. ANTITHYMOCYTE IMMUNOGLOBULIN (HORSE) [Suspect]
     Indication: APLASTIC ANAEMIA

REACTIONS (14)
  - Death [Fatal]
  - Pancytopenia [Unknown]
  - Pneumonia [Unknown]
  - Diabetes insipidus [Unknown]
  - Blood sodium increased [Unknown]
  - Urine osmolarity decreased [Unknown]
  - Thirst [Unknown]
  - Polyuria [Unknown]
  - Leukopenia [Unknown]
  - Anaemia [Unknown]
  - Platelet count increased [Unknown]
  - Dysplasia [Unknown]
  - Blast cell count increased [Unknown]
  - Gene mutation [Unknown]
